FAERS Safety Report 16489571 (Version 1)
Quarter: 2019Q2

REPORT INFORMATION
  Report Type: Report from Study
  Country: US (occurrence: US)
  Receive Date: 20190628
  Receipt Date: 20190628
  Transmission Date: 20190711
  Serious: Yes (Death)
  Sender: FDA-Public Use
  Company Number: US-ROCHE-2345566

PATIENT
  Sex: Male

DRUGS (1)
  1. ESBRIET [Suspect]
     Active Substance: PIRFENIDONE
     Indication: IDIOPATHIC PULMONARY FIBROSIS
     Dosage: 3 CAPSULES BY MOUTH 3 TIMES A DAY ;ONGOING: NO
     Route: 048
     Dates: start: 201809, end: 20190529

REACTIONS (4)
  - Dyspnoea [Fatal]
  - Carbon dioxide increased [Fatal]
  - Atrial flutter [Fatal]
  - Interstitial lung disease [Fatal]
